FAERS Safety Report 6296661-5 (Version None)
Quarter: 2009Q3

REPORT INFORMATION
  Report Type: 
  Country: None (occurrence: None)
  Receive Date: 20090804
  Receipt Date: 20090723
  Transmission Date: 20100115
  Serious: Yes (Hospitalization)
  Sender: FDA-Public Use
  Company Number: US-JNJFOC-20090707762

PATIENT
  Sex: Female
  Weight: 24 kg

DRUGS (6)
  1. REMICADE [Suspect]
     Indication: CROHN'S DISEASE
     Route: 042
  2. REMICADE [Suspect]
     Indication: DRUG DEPENDENCE
     Route: 042
  3. METHOTREXATE [Concomitant]
  4. PREDNISONE TAB [Concomitant]
  5. PREVACID [Concomitant]
  6. CELEXA [Concomitant]

REACTIONS (1)
  - CROHN'S DISEASE [None]
